FAERS Safety Report 18058747 (Version 1)
Quarter: 2020Q3

REPORT INFORMATION
  Report Type: Spontaneous
  Country: CA (occurrence: CA)
  Receive Date: 20200723
  Receipt Date: 20200723
  Transmission Date: 20201103
  Serious: Yes (Other)
  Sender: FDA-Public Use
  Company Number: CA-ACCORD-191538

PATIENT

DRUGS (6)
  1. LEVOMEPROMAZINE [Interacting]
     Active Substance: LEVOMEPROMAZINE
     Indication: POOR QUALITY SLEEP
     Route: 065
  2. TEMAZEPAM. [Interacting]
     Active Substance: TEMAZEPAM
     Indication: POOR QUALITY SLEEP
     Route: 065
  3. QUETIAPINE. [Suspect]
     Active Substance: QUETIAPINE
     Indication: POOR QUALITY SLEEP
     Route: 065
  4. RIVOTRIL [Interacting]
     Active Substance: CLONAZEPAM
     Indication: POOR QUALITY SLEEP
     Route: 048
  5. ZOPICLONE [Interacting]
     Active Substance: ZOPICLONE
     Indication: POOR QUALITY SLEEP
     Route: 065
  6. OXAZEPAM. [Interacting]
     Active Substance: OXAZEPAM
     Indication: POOR QUALITY SLEEP
     Route: 065

REACTIONS (2)
  - Drug interaction [Unknown]
  - Drug ineffective [Unknown]
